FAERS Safety Report 6335556-5 (Version None)
Quarter: 2009Q3

REPORT INFORMATION
  Report Type: 
  Country: None (occurrence: None)
  Receive Date: 20090827
  Receipt Date: 20090817
  Transmission Date: 20100115
  Serious: Yes (Death)
  Sender: FDA-Public Use
  Company Number: 2009-03388

PATIENT
  Age: 73 Year
  Sex: Male

DRUGS (2)
  1. VELCADE [Suspect]
     Indication: MULTIPLE MYELOMA
     Dosage: 1.3 MG/M2, INTRAVENOUS
     Route: 042
     Dates: start: 20090727, end: 20090730
  2. DEXAMETHASONE [Concomitant]

REACTIONS (2)
  - PNEUMONIA ASPIRATION [None]
  - VOMITING [None]
